FAERS Safety Report 19362869 (Version 1)
Quarter: 2021Q2

REPORT INFORMATION
  Report Type: Other
  Country: SE (occurrence: SE)
  Receive Date: 20210603
  Receipt Date: 20210603
  Transmission Date: 20210717
  Serious: Yes (Disabling)
  Sender: FDA-Public Use
  Company Number: SE-DENTSPLY-2021SCDP000167

PATIENT
  Age: 67 Year
  Sex: Female

DRUGS (1)
  1. CARBOCAIN DENTAL [Suspect]
     Active Substance: MEPIVACAINE HYDROCHLORIDE
     Indication: DENTAL LOCAL ANAESTHESIA
     Dosage: 1.8 MILLILITER PER DAY INJECTION FLUID SOLUTION (30 MG/ML)
     Dates: start: 20200701, end: 20200701

REACTIONS (1)
  - Paraesthesia [Recovered/Resolved]

NARRATIVE: CASE EVENT DATE: 20200701
